FAERS Safety Report 8018684-8 (Version None)
Quarter: 2012Q1

REPORT INFORMATION
  Report Type: 
  Country: None (occurrence: None)
  Receive Date: 20120103
  Receipt Date: 20120103
  Transmission Date: 20120608
  Serious: Yes (Other)
  Sender: FDA-Public Use
  Company Number: None

PATIENT
  Age: 42 Year
  Sex: Male
  Weight: 70.76 kg

DRUGS (1)
  1. CRESTOR [Suspect]
     Indication: HIGH DENSITY LIPOPROTEIN INCREASED
     Dosage: 20 MG
     Route: 048
     Dates: start: 20100901, end: 20110705

REACTIONS (6)
  - MYALGIA [None]
  - DYSURIA [None]
  - FATIGUE [None]
  - MUSCULAR WEAKNESS [None]
  - FEELING COLD [None]
  - MUSCLE ATROPHY [None]
